FAERS Safety Report 21775526 (Version 2)
Quarter: 2023Q1

REPORT INFORMATION
  Report Type: Spontaneous
  Country: US (occurrence: US)
  Receive Date: 20221226
  Receipt Date: 20230103
  Transmission Date: 20230418
  Serious: Yes (Other)
  Sender: FDA-Public Use
  Company Number: US-PFIZER INC-PV202200128395

PATIENT
  Age: 77 Year

DRUGS (1)
  1. XELJANZ [Suspect]
     Active Substance: TOFACITINIB CITRATE
     Dosage: UNK

REACTIONS (7)
  - Rheumatoid arthritis [Unknown]
  - Head discomfort [Unknown]
  - Musculoskeletal discomfort [Unknown]
  - Pain [Unknown]
  - Asthma [Unknown]
  - Pain in extremity [Unknown]
  - Arthralgia [Unknown]
